FAERS Safety Report 21496845 (Version 1)
Quarter: 2022Q4

REPORT INFORMATION
  Report Type: Spontaneous
  Country: ES (occurrence: ES)
  Receive Date: 20221022
  Receipt Date: 20221022
  Transmission Date: 20230113
  Serious: Yes (Life-Threatening, Hospitalization)
  Sender: FDA-Public Use
  Company Number: None

PATIENT
  Age: 15 Year
  Sex: Female

DRUGS (3)
  1. TOPIRAMATE [Suspect]
     Active Substance: TOPIRAMATE
     Indication: Suicide attempt
     Dosage: TOPIRAMATE (7245A), UNIT DOSE : 2900MG, FREQUENCY TIME : 1 TOTAL, DURATION : 1DAY
     Dates: start: 20220912, end: 20220912
  2. ARIPIPRAZOLE [Concomitant]
     Active Substance: ARIPIPRAZOLE
     Indication: Suicide attempt
     Dosage: ARIPIPRAZOLE (2933A), UNIT DOSE : 100MG, FREQUENCY TIME : 1 TOTAL, DURATION : 1 DAY
     Route: 065
     Dates: start: 20220912, end: 20220912
  3. METHYLPHENIDATE [Concomitant]
     Active Substance: METHYLPHENIDATE
     Indication: Suicide attempt
     Dosage: METHYLPHENIDATE (3773A), UNIT DOSE : 35MG, FREQUENCY TIME : 1 TOTAL, DURATION : 1 DAY
     Dates: start: 20220912, end: 20220912

REACTIONS (2)
  - Hyperchloraemia [Recovered/Resolved]
  - Metabolic acidosis [Recovered/Resolved]

NARRATIVE: CASE EVENT DATE: 20220912
